FAERS Safety Report 8322967-1 (Version None)
Quarter: 2012Q2

REPORT INFORMATION
  Report Type: 
  Country: None (occurrence: None)
  Receive Date: 20120430
  Receipt Date: 20120416
  Transmission Date: 20120825
  Serious: Yes (Hospitalization, Other)
  Sender: FDA-Public Use
  Company Number: US-MYLANLABS-2008AL007882

PATIENT
  Age: 62 Year
  Sex: Female
  Weight: 60.33 kg

DRUGS (26)
  1. COLESTID [Concomitant]
  2. MAXAIR [Concomitant]
  3. RANITIDINE [Concomitant]
  4. ARIMIDEX [Concomitant]
  5. LEVAQUIN [Concomitant]
  6. SPIRIVA [Concomitant]
  7. PREMARIN [Concomitant]
  8. ACYCLOVIR [Concomitant]
  9. COUMADIN [Concomitant]
  10. COLESTIPOL HYDROCHLORIDE [Concomitant]
  11. FLONASE [Concomitant]
  12. KEFLEX [Concomitant]
  13. LOVENOX [Concomitant]
  14. METOPROLOL TARTRATE [Concomitant]
  15. LIPITOR [Concomitant]
  16. ZANTAC [Concomitant]
  17. NITROSTAT [Concomitant]
  18. ACIPHEX [Concomitant]
  19. TOPROL-XL [Concomitant]
  20. DIGOXIN [Suspect]
     Indication: CARDIAC DISORDER
     Route: 048
     Dates: start: 19990811, end: 20080427
  21. ALPRAZOLAM [Concomitant]
  22. ENALAPRIL MALEATE [Concomitant]
  23. LASIX [Concomitant]
  24. XANAX [Concomitant]
  25. RELAFEN [Concomitant]
  26. PERCOCET [Concomitant]

REACTIONS (58)
  - INJURY [None]
  - RHONCHI [None]
  - WEIGHT DECREASED [None]
  - ATRIAL FIBRILLATION [None]
  - CHEST X-RAY ABNORMAL [None]
  - DIZZINESS [None]
  - ILL-DEFINED DISORDER [None]
  - ANXIETY [None]
  - DEVICE MALFUNCTION [None]
  - STRESS [None]
  - SWELLING [None]
  - BREAST CANCER METASTATIC [None]
  - METASTATIC LYMPHOMA [None]
  - GALLOP RHYTHM PRESENT [None]
  - VERTIGO [None]
  - EMOTIONAL DISTRESS [None]
  - CARDIAC DISORDER [None]
  - BLOOD PRESSURE DECREASED [None]
  - BREAST MASS [None]
  - ARRHYTHMIA [None]
  - CIRCULATORY COLLAPSE [None]
  - CARDIAC ARREST [None]
  - MODIFIED RADICAL MASTECTOMY [None]
  - ECCHYMOSIS [None]
  - INFECTION [None]
  - FACIAL BONES FRACTURE [None]
  - SINUSITIS [None]
  - BIOPSY LYMPH GLAND ABNORMAL [None]
  - OEDEMA PERIPHERAL [None]
  - EXTRASYSTOLES [None]
  - CARDIAC PACEMAKER INSERTION [None]
  - ATRIAL TACHYCARDIA [None]
  - HAEMATOMA [None]
  - BURSITIS [None]
  - MAMMOGRAM ABNORMAL [None]
  - NERVOUS SYSTEM DISORDER [None]
  - SYNCOPE [None]
  - NAUSEA [None]
  - VOMITING [None]
  - DEHYDRATION [None]
  - PALPITATIONS [None]
  - PAIN [None]
  - ANTICOAGULANT THERAPY [None]
  - PRODUCTIVE COUGH [None]
  - OEDEMA [None]
  - FATIGUE [None]
  - BLOODY DISCHARGE [None]
  - POST PROCEDURAL COMPLICATION [None]
  - GASTROENTERITIS VIRAL [None]
  - JOINT RANGE OF MOTION DECREASED [None]
  - CARDIAC MURMUR [None]
  - HEART RATE IRREGULAR [None]
  - TOXICITY TO VARIOUS AGENTS [None]
  - ASTHENIA [None]
  - PRESYNCOPE [None]
  - FLUID RETENTION [None]
  - BREAST CANCER [None]
  - LIMB DISCOMFORT [None]
